FAERS Safety Report 19202175 (Version 3)
Quarter: 2021Q2

REPORT INFORMATION
  Report Type: Report from Study
  Country: GB (occurrence: GB)
  Receive Date: 20210430
  Receipt Date: 20210602
  Transmission Date: 20210717
  Serious: Yes (Death, Hospitalization, Other)
  Sender: FDA-Public Use
  Company Number: GB-JNJFOC-20210458151

PATIENT
  Age: 37 Year
  Sex: Female

DRUGS (2)
  1. BREELIB [Suspect]
     Active Substance: ILOPROST
     Indication: PULMONARY ARTERIAL HYPERTENSION
     Route: 065
     Dates: start: 20180906, end: 20210422
  2. VENTAVIS [Suspect]
     Active Substance: ILOPROST
     Indication: PULMONARY ARTERIAL HYPERTENSION
     Dates: start: 20180906, end: 20210422

REACTIONS (3)
  - Liver transplant [Unknown]
  - Heart transplant [Unknown]
  - Death [Fatal]

NARRATIVE: CASE EVENT DATE: 20210417
